FAERS Safety Report 8207117-4 (Version None)
Quarter: 2012Q1

REPORT INFORMATION
  Report Type: 
  Country: None (occurrence: None)
  Receive Date: 20120314
  Receipt Date: 20120309
  Transmission Date: 20120608
  Serious: Yes (Death)
  Sender: FDA-Public Use
  Company Number: US-PFIZER INC-2012060690

PATIENT
  Sex: Male

DRUGS (1)
  1. SUTENT [Suspect]
     Indication: LUNG NEOPLASM MALIGNANT

REACTIONS (2)
  - LUNG NEOPLASM MALIGNANT [None]
  - DISEASE PROGRESSION [None]
